FAERS Safety Report 17028121 (Version 2)
Quarter: 2020Q1

REPORT INFORMATION
  Report Type: Spontaneous
  Country: BR (occurrence: BR)
  Receive Date: 20191113
  Receipt Date: 20200320
  Transmission Date: 20200409
  Serious: Yes (Other)
  Sender: FDA-Public Use
  Company Number: BR-BIOMARINAP-BR-2019-126854

PATIENT
  Sex: Male

DRUGS (1)
  1. NAGLAZYME [Suspect]
     Active Substance: GALSULFASE
     Indication: MUCOPOLYSACCHARIDOSIS VI
     Dosage: UNK
     Route: 042
     Dates: start: 20080505

REACTIONS (6)
  - Aortic valve incompetence [Unknown]
  - Osteonecrosis [Unknown]
  - Mitral valve incompetence [Unknown]
  - Mastoiditis [Unknown]
  - Spinal cord compression [Unknown]
  - Disease progression [Unknown]
